FAERS Safety Report 9412425 (Version 3)
Quarter: 2014Q2

REPORT INFORMATION
  Report Type: Spontaneous
  Country: CH (occurrence: CH)
  Receive Date: 20130722
  Receipt Date: 20140506
  Transmission Date: 20141212
  Serious: No
  Sender: FDA-Public Use
  Company Number: CH-ELI_LILLY_AND_COMPANY-CH201307004273

PATIENT
  Sex: Male
  Weight: 42.6 kg

DRUGS (5)
  1. STRATTERA [Suspect]
     Indication: ATTENTION DEFICIT/HYPERACTIVITY DISORDER
     Dosage: 70 MG, (1.7MG/KG/DAY)
  2. VALCYTE [Suspect]
     Indication: PROPHYLAXIS
     Dosage: UNK, UNKNOWN
     Route: 065
  3. BACTRIM [Suspect]
     Indication: PROPHYLAXIS
     Dosage: UNK, UNKNOWN
     Route: 065
  4. TACROLIMUS [Suspect]
     Indication: PRODUCT USED FOR UNKNOWN INDICATION
     Dosage: UNK, UNKNOWN
     Route: 065
  5. METHYLPHENIDATE [Concomitant]
     Dosage: 15MG OR 27MG, QD

REACTIONS (5)
  - Blood urea increased [Recovering/Resolving]
  - Blood creatinine increased [Recovering/Resolving]
  - Drug level decreased [Unknown]
  - Bicytopenia [Recovering/Resolving]
  - Prescribed overdose [Unknown]
